FAERS Safety Report 6608271-8 (Version None)
Quarter: 2010Q1

REPORT INFORMATION
  Report Type: 
  Country: None (occurrence: None)
  Receive Date: 20100223
  Receipt Date: 20100216
  Transmission Date: 20100710
  Serious: Yes (Death)
  Sender: FDA-Public Use
  Company Number: 2009USA004373

PATIENT
  Age: 62 Year
  Sex: Male

DRUGS (4)
  1. PROGRAF [Suspect]
     Indication: LIVER TRANSPLANT
     Dates: start: 19991223, end: 20091101
  2. TACROLIMUS [Concomitant]
  3. BLOOD PRESSURE MEDICATIONS [Concomitant]
  4. PAIN MEDICATIONS [Concomitant]

REACTIONS (1)
  - LUNG NEOPLASM MALIGNANT [None]
